FAERS Safety Report 16251741 (Version 1)
Quarter: 2019Q2

REPORT INFORMATION
  Report Type: Spontaneous
  Country: US (occurrence: US)
  Receive Date: 20190428
  Receipt Date: 20190428
  Transmission Date: 20190711
  Serious: Yes (Disabling, Other)
  Sender: FDA-Public Use
  Company Number: None

PATIENT
  Age: 56 Year
  Sex: Female
  Weight: 58.5 kg

DRUGS (14)
  1. MULTI VITAMIN [Concomitant]
     Active Substance: VITAMINS
  2. BACLOFEN. [Concomitant]
     Active Substance: BACLOFEN
  3. OCUVITE [Concomitant]
     Active Substance: VITAMINS
  4. METRONIC PUMP [Concomitant]
  5. DISIPRAMINE [Concomitant]
     Active Substance: DESIPRAMINE
  6. OXYCODONE [Suspect]
     Active Substance: OXYCODONE
     Indication: PAIN
     Dosage: ?          QUANTITY:2 TABLET(S);?
     Route: 048
  7. CLONAZEPAM. [Concomitant]
     Active Substance: CLONAZEPAM
  8. CLONIDINE. [Concomitant]
     Active Substance: CLONIDINE
  9. USANA PHYTOESTROGEN [Concomitant]
  10. BIOTIN [Concomitant]
     Active Substance: BIOTIN
  11. LISINAPRIL [Concomitant]
  12. VITAMIN C [Concomitant]
     Active Substance: ASCORBIC ACID
  13. NUVECTRA STIMULATOR [Concomitant]
  14. VITA D [Concomitant]

REACTIONS (11)
  - Dizziness [None]
  - Anxiety [None]
  - Tremor [None]
  - Pain [None]
  - Asthenia [None]
  - Fatigue [None]
  - Dry mouth [None]
  - Product formulation issue [None]
  - Malaise [None]
  - Palpitations [None]
  - Manufacturing materials issue [None]

NARRATIVE: CASE EVENT DATE: 20190405
